FAERS Safety Report 4775453-X (Version None)
Quarter: 2005Q3

REPORT INFORMATION
  Report Type: 
  Country: None (occurrence: None)
  Receive Date: 20050921
  Receipt Date: 20050921
  Transmission Date: 20060218
  Serious: Yes (Hospitalization)
  Sender: FDA-Public Use
  Company Number: None

PATIENT
  Sex: Male
  Weight: 55.3388 kg

DRUGS (2)
  1. EPZICOM [Suspect]
     Indication: HIV INFECTION
     Dosage: 600/300 DAILY PO
     Route: 048
     Dates: start: 20040424, end: 20050504
  2. SUSTIVA [Suspect]
     Indication: HIV INFECTION
     Dosage: 600 DAILY PO
     Route: 048
     Dates: start: 20040424, end: 20050504

REACTIONS (13)
  - ABDOMINAL PAIN [None]
  - ASCITES [None]
  - CHILLS [None]
  - IMMUNE RECONSTITUTION SYNDROME [None]
  - LYMPHADENITIS [None]
  - MYCOBACTERIUM AVIUM COMPLEX INFECTION [None]
  - PULMONARY OEDEMA [None]
  - PYREXIA [None]
  - RASH [None]
  - RASH MACULO-PAPULAR [None]
  - SYSTEMIC INFLAMMATORY RESPONSE SYNDROME [None]
  - THROMBOSIS [None]
  - VOMITING [None]
